FAERS Safety Report 9074761 (Version 5)
Quarter: 2013Q4

REPORT INFORMATION
  Report Type: Spontaneous
  Country: US (occurrence: US)
  Receive Date: 20130129
  Receipt Date: 20131007
  Transmission Date: 20140711
  Serious: Yes (Hospitalization, Disabling, Other)
  Sender: FDA-Public Use
  Company Number: US-009507513-1208USA009419

PATIENT
  Sex: Female

DRUGS (17)
  1. FOSAMAX [Suspect]
     Indication: OSTEOPOROSIS
     Dosage: 10 MG, QW
     Route: 048
     Dates: start: 1996, end: 200311
  2. FOSAMAX [Suspect]
     Indication: BONE LOSS
  3. ALENDRONATE SODIUM [Suspect]
     Indication: OSTEOPOROSIS
  4. ALENDRONATE SODIUM [Suspect]
     Indication: OSTEOPOROSIS PROPHYLAXIS
  5. CORTICOSTEROIDS (UNSPECIFIED) [Concomitant]
     Indication: PRODUCT USED FOR UNKNOWN INDICATION
     Dosage: UNK
     Dates: start: 1980, end: 2012
  6. PREDNISONE [Concomitant]
     Indication: SYSTEMIC LUPUS ERYTHEMATOSUS
     Dosage: 2.5-100 MG, QD
  7. CYTOXAN [Concomitant]
     Indication: SYSTEMIC LUPUS ERYTHEMATOSUS
  8. METHOTREXATE [Concomitant]
     Indication: SYSTEMIC LUPUS ERYTHEMATOSUS
  9. PLAQUENIL [Concomitant]
     Indication: RHEUMATIC DISORDER
     Dosage: UNK
     Dates: start: 1981, end: 2006
  10. MOTRIN [Concomitant]
     Indication: PAIN
     Dosage: UNK
     Dates: start: 1981, end: 2004
  11. TRIAMTERENE [Concomitant]
     Indication: FLUID RETENTION
  12. SYNTHROID [Concomitant]
     Indication: THYROID DISORDER
     Dosage: UNK
     Dates: start: 1989
  13. FUROSEMIDE [Concomitant]
     Indication: HYPERTENSION
  14. FIORICET [Concomitant]
     Indication: PAIN
     Dosage: UNK
     Dates: start: 2003
  15. LORAZEPAM [Concomitant]
     Indication: ANXIETY
     Dosage: UNK
     Dates: start: 1982
  16. METOPROLOL [Concomitant]
     Indication: HYPERTENSION
  17. PROGESTERONE [Concomitant]
     Dosage: UNK
     Dates: start: 1986, end: 2000

REACTIONS (45)
  - Femoral neck fracture [Not Recovered/Not Resolved]
  - Internal fixation of fracture [Not Recovered/Not Resolved]
  - Removal of internal fixation [Unknown]
  - Fracture nonunion [Unknown]
  - Osteonecrosis [Unknown]
  - Hip arthroplasty [Unknown]
  - Osteoporosis [Not Recovered/Not Resolved]
  - Stress fracture [Not Recovered/Not Resolved]
  - Femur fracture [Not Recovered/Not Resolved]
  - Low turnover osteopathy [Not Recovered/Not Resolved]
  - Skin graft [Not Recovered/Not Resolved]
  - Hip surgery [Unknown]
  - Surgery [Unknown]
  - Convulsion [Unknown]
  - Arthropathy [Unknown]
  - Foot fracture [Unknown]
  - Impaired healing [Recovered/Resolved]
  - Weight decreased [Unknown]
  - Skin graft failure [Not Recovered/Not Resolved]
  - Foot fracture [Recovering/Resolving]
  - Tendon disorder [Unknown]
  - Fungal infection [Unknown]
  - Patella fracture [Unknown]
  - Device breakage [Unknown]
  - Herpes zoster [Unknown]
  - Fall [Unknown]
  - Limb asymmetry [Unknown]
  - Arthritis [Unknown]
  - Device material issue [Unknown]
  - Dysuria [Unknown]
  - Medical device complication [Unknown]
  - Neurectomy [Unknown]
  - Tonsillectomy [Unknown]
  - Sinus operation [Unknown]
  - Nasal septal operation [Unknown]
  - Surgery [Unknown]
  - Surgery [Unknown]
  - Depression [Unknown]
  - Dyspnoea [Unknown]
  - Hypokalaemia [Unknown]
  - Adenoidectomy [Unknown]
  - Angina pectoris [Unknown]
  - Incorrect dose administered [Unknown]
  - Hypotonia [Unknown]
  - Adverse event [Unknown]
